FAERS Safety Report 6752636-0 (Version None)
Quarter: 2010Q2

REPORT INFORMATION
  Report Type: 
  Country: None (occurrence: None)
  Receive Date: 20100601
  Receipt Date: 20100601
  Transmission Date: 20101027
  Serious: Yes (Hospitalization)
  Sender: FDA-Public Use
  Company Number: None

PATIENT
  Sex: Male
  Weight: 62 kg

DRUGS (9)
  1. VANCOMYCIN [Suspect]
     Indication: PNEUMONIA
     Dosage: 1000 MG EVERY 12 HOURS IV
     Route: 042
     Dates: start: 20100503, end: 20100508
  2. ALBUTEROL [Concomitant]
  3. ACETAMINOPHEN [Concomitant]
  4. AZITHROMYCIN [Concomitant]
  5. PIPERACILLIN [Concomitant]
  6. DICYCLOMINE [Concomitant]
  7. DIPHENHYDRAMINE HYDROCHLORIDE [Concomitant]
  8. ENOXAPARIN SODIUM [Concomitant]
  9. FUROSEMIDE [Concomitant]

REACTIONS (2)
  - BLOOD CREATININE INCREASED [None]
  - DRUG LEVEL INCREASED [None]
